FAERS Safety Report 7225049-5 (Version None)
Quarter: 2010Q4

REPORT INFORMATION
  Report Type: 
  Country: None (occurrence: None)
  Receive Date: 20101223
  Receipt Date: 20101213
  Transmission Date: 20110411
  Serious: Yes (Hospitalization, Other)
  Sender: FDA-Public Use
  Company Number: 2010022218

PATIENT
  Age: 72 Year
  Sex: Male

DRUGS (1)
  1. HAEMATE HS (FACTOR VIII (ANTIHAEMOPHILIC FACTOR)) LOT# 5906642 [Suspect]
     Indication: HIP ARTHROPLASTY
     Dosage: 4000 IU INTRAVENOUS
     Route: 042
     Dates: start: 19970908

REACTIONS (1)
  - PULMONARY EMBOLISM [None]
